FAERS Safety Report 16885892 (Version 2)
Quarter: 2019Q4

REPORT INFORMATION
  Report Type: Spontaneous
  Country: US (occurrence: US)
  Receive Date: 20191004
  Receipt Date: 20191010
  Transmission Date: 20200122
  Serious: No
  Sender: FDA-Public Use
  Company Number: US-ACTELION-A-US2019-196172

PATIENT
  Age: 42 Year
  Sex: Female

DRUGS (1)
  1. UPTRAVI [Suspect]
     Active Substance: SELEXIPAG
     Indication: PULMONARY ARTERIAL HYPERTENSION
     Dosage: 600 MCG, BID
     Route: 048

REACTIONS (8)
  - Muscular weakness [Unknown]
  - Nausea [Unknown]
  - Skin discolouration [Unknown]
  - Dizziness [Unknown]
  - Adverse event [Unknown]
  - Accidental overdose [Unknown]
  - Feeling cold [Unknown]
  - Feeling abnormal [Unknown]

NARRATIVE: CASE EVENT DATE: 20190920
